FAERS Safety Report 17239845 (Version 2)
Quarter: 2020Q1

REPORT INFORMATION
  Report Type: Spontaneous
  Country: JP (occurrence: JP)
  Receive Date: 20200106
  Receipt Date: 20200220
  Transmission Date: 20200409
  Serious: Yes (Hospitalization)
  Sender: FDA-Public Use
  Company Number: JP-CELLTRION INC.-2019JP027717

PATIENT

DRUGS (3)
  1. SYMBICORT [Concomitant]
     Active Substance: BUDESONIDE\FORMOTEROL FUMARATE DIHYDRATE
     Route: 007
  2. TRASTUZUMAB BS FOR I.V. INFUSION ?CTH? [Suspect]
     Active Substance: TRASTUZUMAB
     Indication: BREAST CANCER
     Dosage: 230 MG/BODY
     Route: 041
     Dates: start: 20191114
  3. TRASTUZUMAB BS FOR I.V. INFUSION ?CTH? [Suspect]
     Active Substance: TRASTUZUMAB
     Dosage: 230 MG/BODY
     Route: 041
     Dates: start: 20191205, end: 20191205

REACTIONS (6)
  - Pyrexia [Recovered/Resolved]
  - White blood cell count increased [Recovered/Resolved]
  - Pneumonia [Recovered/Resolved]
  - Arthralgia [Recovered/Resolved]
  - Chills [Recovered/Resolved]
  - Cough [Recovered/Resolved]

NARRATIVE: CASE EVENT DATE: 20191218
